FAERS Safety Report 19221022 (Version 1)
Quarter: 2021Q2

REPORT INFORMATION
  Report Type: Spontaneous
  Country: BR (occurrence: BR)
  Receive Date: 20210505
  Receipt Date: 20210505
  Transmission Date: 20210717
  Serious: Yes (Other)
  Sender: FDA-Public Use
  Company Number: BR-TAKEDA-2021TUS028073

PATIENT
  Sex: Female

DRUGS (1)
  1. DEXILANT [Suspect]
     Active Substance: DEXLANSOPRAZOLE
     Indication: OESOPHAGITIS
     Dosage: 30 MILLIGRAM
     Route: 065

REACTIONS (13)
  - Condition aggravated [Unknown]
  - Burning sensation [Unknown]
  - Abdominal pain [Unknown]
  - Post-acute COVID-19 syndrome [Unknown]
  - Dizziness [Unknown]
  - Headache [Unknown]
  - Trigeminal neuralgia [Unknown]
  - Off label use [Unknown]
  - Arthralgia [Unknown]
  - Paraesthesia [Unknown]
  - Sinusitis [Unknown]
  - Oropharyngeal pain [Unknown]
  - Somnolence [Unknown]
